FAERS Safety Report 6005447-8 (Version None)
Quarter: 2008Q4

REPORT INFORMATION
  Report Type: 
  Country: None (occurrence: None)
  Receive Date: 20081217
  Receipt Date: 20081205
  Transmission Date: 20090506
  Serious: Yes (Hospitalization)
  Sender: FDA-Public Use
  Company Number: FR-JNJFOC-20081202242

PATIENT
  Age: 7 Year
  Sex: Male
  Weight: 20 kg

DRUGS (14)
  1. REMICADE [Suspect]
     Dosage: 11TH INFUSION
     Route: 042
  2. REMICADE [Suspect]
     Route: 042
  3. REMICADE [Suspect]
     Dosage: 9TH INFUSION
     Route: 042
  4. REMICADE [Suspect]
     Dosage: 8TH INFUSION
     Route: 042
  5. REMICADE [Suspect]
     Dosage: 7TH INFUSION
     Route: 042
  6. REMICADE [Suspect]
     Route: 042
  7. REMICADE [Suspect]
     Route: 042
  8. REMICADE [Suspect]
     Route: 042
  9. REMICADE [Suspect]
     Route: 042
  10. REMICADE [Suspect]
     Dosage: 2ND INFUSION
     Route: 042
  11. REMICADE [Suspect]
     Indication: JUVENILE ARTHRITIS
     Route: 042
  12. SOLUPRED [Concomitant]
  13. SOLUPRED [Concomitant]
     Indication: JUVENILE ARTHRITIS
  14. INDOCIN [Concomitant]

REACTIONS (15)
  - ABDOMINAL PAIN [None]
  - ANAEMIA [None]
  - ANAPHYLACTOID REACTION [None]
  - BLOOD PRESSURE ABNORMAL [None]
  - COUGH [None]
  - EOSINOPHILIA [None]
  - HEART RATE INCREASED [None]
  - HOT FLUSH [None]
  - HYPERSENSITIVITY [None]
  - INFUSION RELATED REACTION [None]
  - MALAISE [None]
  - OROPHARYNGEAL PAIN [None]
  - PALLOR [None]
  - TREMOR [None]
  - WEIGHT INCREASED [None]
